FAERS Safety Report 23116598 (Version 1)
Quarter: 2023Q4

REPORT INFORMATION
  Report Type: Report from Study
  Country: CA (occurrence: CA)
  Receive Date: 20231027
  Receipt Date: 20231027
  Transmission Date: 20240110
  Serious: Yes (Death, Other)
  Sender: FDA-Public Use
  Company Number: CA-GILEAD-2023-0648874

PATIENT
  Sex: Male

DRUGS (11)
  1. SACITUZUMAB GOVITECAN-HZIY [Suspect]
     Active Substance: SACITUZUMAB GOVITECAN-HZIY
     Indication: Non-small cell lung cancer
     Dosage: 587 MG
     Route: 042
  2. .ALPHA.-ACETYLDIGOXIN [Suspect]
     Active Substance: .ALPHA.-ACETYLDIGOXIN
     Indication: Atrial fibrillation
     Route: 048
  3. ELIQUIS [Suspect]
     Active Substance: APIXABAN
     Indication: Atrial fibrillation
     Route: 048
  4. CODEINE [Concomitant]
     Active Substance: CODEINE
  5. FOLIC ACID [Concomitant]
     Active Substance: FOLIC ACID
  6. HYDROCORTISONE ACETATE [Concomitant]
     Active Substance: HYDROCORTISONE ACETATE
  7. LORATADINE [Concomitant]
     Active Substance: LORATADINE
  8. POLYETHYLENE GLYCOLS [Concomitant]
     Active Substance: POLYETHYLENE GLYCOLS
  9. PANTOPRAZOLE [Concomitant]
     Active Substance: PANTOPRAZOLE
  10. TIOTROPIUM BROMIDE MONOHYDRATE [Concomitant]
     Active Substance: TIOTROPIUM BROMIDE MONOHYDRATE
  11. CYANOCOBALAMIN\FOLIC ACID [Concomitant]
     Active Substance: CYANOCOBALAMIN\FOLIC ACID

REACTIONS (6)
  - Death [Fatal]
  - Atrial fibrillation [Unknown]
  - Pulmonary embolism [Unknown]
  - Toxicity to various agents [Unknown]
  - Treatment noncompliance [Unknown]
  - Incorrect dosage administered [Unknown]
